FAERS Safety Report 24571391 (Version 2)
Quarter: 2024Q4

REPORT INFORMATION
  Report Type: Spontaneous
  Country: US (occurrence: US)
  Receive Date: 20241101
  Receipt Date: 20241104
  Transmission Date: 20250115
  Serious: Yes (Hospitalization)
  Sender: BRISTOL-MYERS SQUIBB COMPANY
  Company Number: US-BRISTOL-MYERS SQUIBB COMPANY-2024-169544

PATIENT
  Age: 82 Year
  Sex: Female

DRUGS (1)
  1. ELIQUIS [Suspect]
     Active Substance: APIXABAN
     Indication: Product used for unknown indication
     Dates: start: 20240301

REACTIONS (11)
  - Limb injury [Unknown]
  - Skin discolouration [Recovering/Resolving]
  - Vein disorder [Unknown]
  - Contusion [Unknown]
  - Sunburn [Unknown]
  - Haemorrhage [Unknown]
  - Inability to afford medication [Unknown]
  - Wound haemorrhage [Unknown]
  - Osteoporosis [Unknown]
  - Pigmentation disorder [Unknown]
  - Skin wrinkling [Unknown]

NARRATIVE: CASE EVENT DATE: 20241027
